FAERS Safety Report 7282286-1 (Version None)
Quarter: 2011Q1

REPORT INFORMATION
  Report Type: 
  Country: None (occurrence: None)
  Receive Date: 20110125
  Receipt Date: 20110118
  Transmission Date: 20110831
  Serious: Yes (Hospitalization)
  Sender: FDA-Public Use
  Company Number: 804824

PATIENT
  Age: 67 Year
  Sex: Female

DRUGS (5)
  1. TOPIRAMATE [Concomitant]
  2. PHENYTOIN [Suspect]
     Indication: CONVULSION PROPHYLAXIS
     Dosage: 200 MG QAM ; 26 MG QHS
  3. OXCARBAZEPINE [Suspect]
     Indication: CONVULSION PROPHYLAXIS
     Dosage: 150 MG BID
  4. CLONAZEPAM [Concomitant]
  5. QUETIAPINE [Concomitant]

REACTIONS (5)
  - FALL [None]
  - ATAXIA [None]
  - TOXICITY TO VARIOUS AGENTS [None]
  - DRUG INTERACTION [None]
  - BIPOLAR I DISORDER [None]
